FAERS Safety Report 8507885-8 (Version None)
Quarter: 2012Q3

REPORT INFORMATION
  Report Type: 
  Country: None (occurrence: None)
  Receive Date: 20120713
  Receipt Date: 20120710
  Transmission Date: 20120928
  Serious: Yes (Hospitalization, Other)
  Sender: FDA-Public Use
  Company Number: BR-US-EMD SERONO, INC.-7136945

PATIENT
  Sex: Male

DRUGS (3)
  1. ASCORBIC ACID [Concomitant]
     Indication: IMMUNE ENHANCEMENT THERAPY
  2. VITAMIN D [Concomitant]
     Indication: MULTIPLE SCLEROSIS
  3. REBIF [Suspect]
     Indication: RELAPSING-REMITTING MULTIPLE SCLEROSIS
     Route: 058
     Dates: start: 20040728

REACTIONS (5)
  - MUSCLE SPASMS [None]
  - URINARY TRACT INFECTION [None]
  - RENAL CANCER [None]
  - URINARY INCONTINENCE [None]
  - PAIN IN EXTREMITY [None]
